FAERS Safety Report 16133252 (Version 2)
Quarter: 2019Q2

REPORT INFORMATION
  Report Type: Spontaneous
  Country: US (occurrence: US)
  Receive Date: 20190329
  Receipt Date: 20190402
  Transmission Date: 20190711
  Serious: No
  Sender: FDA-Public Use
  Company Number: US-JNJFOC-20190309330

PATIENT
  Sex: Female
  Weight: 97.07 kg

DRUGS (3)
  1. ASPIRIN. [Concomitant]
     Active Substance: ASPIRIN
     Indication: ANEURYSM
     Route: 048
     Dates: start: 201612
  2. STELARA [Suspect]
     Active Substance: USTEKINUMAB
     Indication: PSORIASIS
     Route: 058
  3. METOPROLOL. [Concomitant]
     Active Substance: METOPROLOL
     Indication: ANEURYSM
     Route: 048
     Dates: start: 2016

REACTIONS (1)
  - Therapeutic response decreased [Unknown]
